FAERS Safety Report 19957248 (Version 1)
Quarter: 2021Q4

REPORT INFORMATION
  Report Type: Spontaneous
  Country: EG (occurrence: EG)
  Receive Date: 20211014
  Receipt Date: 20211014
  Transmission Date: 20220303
  Serious: Yes (Death, Other)
  Sender: FDA-Public Use
  Company Number: EG-ABBVIE-21K-048-4119517-00

PATIENT
  Age: 16 Year
  Sex: Female

DRUGS (4)
  1. VALPROATE SODIUM [Suspect]
     Active Substance: VALPROATE SODIUM
     Indication: Depression
     Route: 065
     Dates: start: 20190211
  2. ESCITALOPRAM OXALATE [Suspect]
     Active Substance: ESCITALOPRAM OXALATE
     Indication: Depression
     Route: 065
     Dates: start: 20190207
  3. RISPERIDONE [Suspect]
     Active Substance: RISPERIDONE
     Indication: Depression
     Route: 065
     Dates: start: 20190210
  4. COGENTIN [Suspect]
     Active Substance: BENZTROPINE MESYLATE
     Indication: Depression
     Route: 065
     Dates: start: 20190212

REACTIONS (1)
  - Pneumonia aspiration [Fatal]
